FAERS Safety Report 16756357 (Version 1)
Quarter: 2019Q4

REPORT INFORMATION
  Report Type: Spontaneous
  Country: US (occurrence: US)
  Receive Date: 20190829
  Receipt Date: 20190829
  Transmission Date: 20200122
  Serious: Yes (Other)
  Sender: FDA-Public Use
  Company Number: None

PATIENT
  Age: 74 Year
  Sex: Male
  Weight: 85.5 kg

DRUGS (2)
  1. RITUXAN [Suspect]
     Active Substance: RITUXIMAB
  2. ADVAIR HFA [Concomitant]
     Active Substance: FLUTICASONE PROPIONATE\SALMETEROL XINAFOATE

REACTIONS (16)
  - Hiccups [None]
  - Regurgitation [None]
  - Muscle tightness [None]
  - Insomnia [None]
  - Gingival pain [None]
  - Oropharyngeal pain [None]
  - Product use complaint [None]
  - Stomatitis [None]
  - Dyspnoea [None]
  - Eye pain [None]
  - Constipation [None]
  - Chills [None]
  - Abdominal pain upper [None]
  - Headache [None]
  - Toothache [None]
  - Abdominal pain lower [None]

NARRATIVE: CASE EVENT DATE: 20190809
